FAERS Safety Report 5107555-2 (Version None)
Quarter: 2006Q3

REPORT INFORMATION
  Report Type: 
  Country: None (occurrence: None)
  Receive Date: 20060731
  Receipt Date: 20060407
  Transmission Date: 20061208
  Serious: No
  Sender: FDA-Public Use
  Company Number: 2006PV011717

PATIENT
  Age: 51 Year
  Sex: Female
  Weight: 127.0072 kg

DRUGS (2)
  1. BYETTA [Suspect]
     Indication: DRUG USE FOR UNKNOWN INDICATION
     Dosage: 5MCG, BID; SC
     Route: 058
     Dates: start: 20060402
  2. GLUCOPHAGE [Concomitant]

REACTIONS (2)
  - INJECTION SITE HAEMORRHAGE [None]
  - MEDICATION ERROR [None]
